FAERS Safety Report 9322990 (Version 3)
Quarter: 2013Q4

REPORT INFORMATION
  Report Type: Spontaneous
  Country: US (occurrence: US)
  Receive Date: 20130603
  Receipt Date: 20131126
  Transmission Date: 20140711
  Serious: Yes (Hospitalization)
  Sender: FDA-Public Use
  Company Number: US-B.I. PHARMACEUTICALS,INC./RIDGEFIELD-2013-BI-14850BP

PATIENT
  Sex: Female
  Weight: 81.19 kg

DRUGS (14)
  1. PRADAXA [Suspect]
     Indication: ATRIAL FIBRILLATION
     Dosage: 300 MG
     Dates: start: 201204, end: 20120718
  2. ASPIRIN [Suspect]
     Dosage: 81 MCG
  3. PRAVASTATIN [Concomitant]
     Dosage: 10 MG
  4. MIRTAZAPINE [Concomitant]
     Dosage: 30 MG
  5. HYDROCODONE [Concomitant]
  6. FUROSEMIDE [Concomitant]
     Dosage: 40 MG
  7. EXFORGE [Concomitant]
  8. LEVOTHYROXINE [Concomitant]
     Dosage: 175 MG
  9. RANITIDINE [Concomitant]
     Dosage: 300 MG
  10. METOPROLOL [Concomitant]
     Dosage: 25 MG
  11. DIGOXIN [Concomitant]
     Dosage: 125 MCG
  12. CYMBALTA [Concomitant]
     Dosage: 60 MCG
  13. NAMENDA [Concomitant]
     Dosage: 10 MCG
  14. OXYGEN [Concomitant]

REACTIONS (4)
  - Pulmonary alveolar haemorrhage [Unknown]
  - Haemorrhagic anaemia [Unknown]
  - Renal failure acute [Unknown]
  - Acute respiratory failure [Unknown]
